FAERS Safety Report 14777465 (Version 1)
Quarter: 2018Q2

REPORT INFORMATION
  Report Type: Spontaneous
  Country: FR (occurrence: FR)
  Receive Date: 20180419
  Receipt Date: 20180419
  Transmission Date: 20180711
  Serious: Yes (Other)
  Sender: FDA-Public Use
  Company Number: FR-MERCK KGAA-2046025

PATIENT
  Age: 50 Year
  Sex: Female

DRUGS (1)
  1. NOVOTHYROX [Suspect]
     Active Substance: LEVOTHYROXINE SODIUM
     Indication: THYROID DISORDER
     Dates: start: 201707

REACTIONS (16)
  - Hyperthyroidism [None]
  - Dyspnoea [None]
  - Social avoidant behaviour [None]
  - Insomnia [None]
  - Dysstasia [None]
  - Decreased interest [None]
  - Dizziness [None]
  - Tremor [None]
  - Frequent bowel movements [None]
  - Fatigue [None]
  - Pain in extremity [None]
  - Hypothyroidism [None]
  - Crying [None]
  - Tachycardia [None]
  - Musculoskeletal stiffness [None]
  - Anxiety [None]

NARRATIVE: CASE EVENT DATE: 2017
